FAERS Safety Report 6424908-0 (Version None)
Quarter: 2009Q4

REPORT INFORMATION
  Report Type: 
  Country: None (occurrence: None)
  Receive Date: 20091102
  Receipt Date: 20091102
  Transmission Date: 20100525
  Serious: Yes (Hospitalization)
  Sender: FDA-Public Use
  Company Number: None

PATIENT

DRUGS (2)
  1. LINEZOLID [Suspect]
     Indication: INFECTION
     Dosage: 600 MG BID IV
     Route: 042
     Dates: start: 20090824, end: 20090831
  2. LINEZOLID [Suspect]
     Indication: STAPHYLOCOCCAL INFECTION
     Dosage: 600 MG BID IV
     Route: 042
     Dates: start: 20090824, end: 20090831

REACTIONS (5)
  - AGITATION [None]
  - CONFUSIONAL STATE [None]
  - PYREXIA [None]
  - RASH [None]
  - RENAL FAILURE ACUTE [None]
